FAERS Safety Report 16226364 (Version 2)
Quarter: 2019Q2

REPORT INFORMATION
  Report Type: Spontaneous
  Country: US (occurrence: US)
  Receive Date: 20190423
  Receipt Date: 20190523
  Transmission Date: 20190711
  Serious: No
  Sender: FDA-Public Use
  Company Number: US-009507513-1904USA009245

PATIENT
  Age: 18 Year
  Sex: Female
  Weight: 62.13 kg

DRUGS (1)
  1. NEXPLANON [Suspect]
     Active Substance: ETONOGESTREL
     Indication: CONTRACEPTION
     Dosage: 1 ROD, EVERY 3 YEARS
     Route: 059
     Dates: start: 20190306, end: 20190418

REACTIONS (8)
  - Foreign body reaction [Recovering/Resolving]
  - Implant site erythema [Recovering/Resolving]
  - Device expulsion [Recovered/Resolved]
  - Implant site irritation [Recovering/Resolving]
  - Implant site erosion [Unknown]
  - Skin disorder [Recovering/Resolving]
  - Implant site hypersensitivity [Unknown]
  - Implant site infection [Recovering/Resolving]

NARRATIVE: CASE EVENT DATE: 2019
